FAERS Safety Report 9228601 (Version 1)
Quarter: 2013Q2

REPORT INFORMATION
  Report Type: Report from Study
  Country: KR (occurrence: KR)
  Receive Date: 20130412
  Receipt Date: 20130412
  Transmission Date: 20140414
  Serious: Yes (Hospitalization)
  Sender: FDA-Public Use
  Company Number: KR-ABBOTT-13P-286-1073681-00

PATIENT
  Age: 48 Year
  Sex: Male

DRUGS (15)
  1. KALETRA TABLETS 200/50 [Suspect]
     Indication: HIV INFECTION
     Dosage: DAILY DOSE: 800/200MG, UNIT DOSE: 800/200MG, FORM STRENGTH: 200/50MG
     Route: 048
     Dates: start: 20100607
  2. ABACAVIR [Concomitant]
     Indication: HIV INFECTION
     Dosage: 600 MG DAILY
     Dates: start: 20100607, end: 20100615
  3. 3TC [Concomitant]
     Indication: HIV INFECTION
     Dosage: 300 MG DAILY
     Dates: start: 20100607, end: 20100615
  4. 3TC/AZT [Concomitant]
     Indication: HIV INFECTION
     Dosage: 2 TABLETS DAILY
     Dates: start: 20100727
  5. CRAVIT [Concomitant]
     Indication: ORAL CANDIDIASIS
     Route: 048
     Dates: start: 20100531, end: 20100607
  6. UCERAX [Concomitant]
     Indication: PRURITUS
     Route: 048
     Dates: start: 20100524
  7. DIFLUCAN [Concomitant]
     Indication: ORAL CANDIDIASIS
     Route: 048
     Dates: start: 20100517, end: 20100614
  8. NYSTATIN SUSPENSION [Concomitant]
     Indication: ORAL CANDIDIASIS
     Route: 048
     Dates: start: 20100607, end: 20101230
  9. MACPERAN [Concomitant]
     Indication: PROPHYLAXIS OF NAUSEA AND VOMITING
     Route: 048
     Dates: start: 20100607, end: 20100621
  10. CLOSERINE [Concomitant]
     Indication: DISSEMINATED TUBERCULOSIS
     Route: 048
     Dates: start: 20100607, end: 20100621
  11. PROTHIONAMIDE [Concomitant]
     Indication: DISSEMINATED TUBERCULOSIS
     Route: 048
     Dates: start: 20100531, end: 20100623
  12. LEVOFEXIN [Concomitant]
     Indication: HIV INFECTION
     Route: 048
     Dates: start: 20101230
  13. ALLEGRA [Concomitant]
     Indication: PRURITUS
     Dosage: 180 MG DAILY
     Route: 048
     Dates: start: 20110113
  14. SOLONDO [Concomitant]
     Indication: HIV INFECTION
     Route: 048
     Dates: start: 20110113, end: 20110127
  15. HYSONE [Concomitant]
     Indication: HIV INFECTION
     Dosage: 30 MG DAILY
     Route: 048
     Dates: start: 20101002, end: 20101206

REACTIONS (20)
  - Herpes zoster [Recovered/Resolved]
  - Disseminated tuberculosis [Recovered/Resolved]
  - Disseminated tuberculosis [Recovered/Resolved]
  - Spleen tuberculosis [Recovered/Resolved]
  - Disseminated tuberculosis [Recovered/Resolved]
  - Decreased appetite [Recovered/Resolved]
  - Nasopharyngitis [Recovered/Resolved]
  - Bipolar disorder [Recovered/Resolved]
  - Blood uric acid increased [Unknown]
  - Blood cholesterol decreased [Unknown]
  - White blood cell count decreased [Unknown]
  - Haemoglobin decreased [Unknown]
  - Blood triglycerides increased [Unknown]
  - Alanine aminotransferase increased [Unknown]
  - Blood cholesterol increased [Unknown]
  - Blood glucose increased [Unknown]
  - Aspartate aminotransferase increased [Unknown]
  - Blood cholesterol decreased [Unknown]
  - High density lipoprotein decreased [Unknown]
  - Platelet count decreased [Unknown]
